FAERS Safety Report 19614096 (Version 2)
Quarter: 2022Q4

REPORT INFORMATION
  Report Type: Spontaneous
  Country: DE (occurrence: DE)
  Receive Date: 20210727
  Receipt Date: 20221203
  Transmission Date: 20230112
  Serious: Yes (Death, Hospitalization)
  Sender: FDA-Public Use
  Company Number: None

PATIENT
  Age: 83 Year
  Sex: Male
  Weight: 69.2 kg

DRUGS (11)
  1. APIXABAN [Suspect]
     Active Substance: APIXABAN
     Indication: Product used for unknown indication
     Dosage: 2.5 MG, 1-0-1-0, TABLETS
  2. SPIRONOLACTONE [Suspect]
     Active Substance: SPIRONOLACTONE
     Indication: Product used for unknown indication
     Dosage: 100 MG, 1-0-0-0, TABLETS
  3. XIPAMIDE [Suspect]
     Active Substance: XIPAMIDE
     Indication: Product used for unknown indication
     Dosage: 10 MG, 1-0-0-0, TABLETS
  4. TORSEMIDE [Suspect]
     Active Substance: TORSEMIDE
     Indication: Product used for unknown indication
     Dosage: 20 MG, 1-0-0-0, TABLETS
  5. METAMIZOLE [Concomitant]
     Active Substance: METAMIZOLE
     Dosage: 20 GTT, IF NECESSARY, DROPS
  6. SODIUM PICOSULFATE [Concomitant]
     Active Substance: SODIUM PICOSULFATE
     Dosage: 0-0-0-8, DROPS
  7. ALLOPURINOL [Concomitant]
     Active Substance: ALLOPURINOL
     Dosage: 100 MG, 1-0-0-0, TABLETS
  8. TRICLOSAN [Concomitant]
     Active Substance: TRICLOSAN
     Dosage: 20/ 1 MG / G, 1-0-0-0, OINTMENT
  9. PANTOPRAZOLE SODIUM [Concomitant]
     Active Substance: PANTOPRAZOLE SODIUM
     Dosage: 1-0-1-0, TABLETS
  10. Triclosan, Flumetasone [Concomitant]
     Dosage: 0.2 MG, 1-0-0-0, SALBE
  11. CLOTRIMAZOLE [Concomitant]
     Active Substance: CLOTRIMAZOLE
     Dosage: 10 MG, 0-0-1-0, OINTMENT

REACTIONS (4)
  - Haemoptysis [Unknown]
  - Asthenia [Unknown]
  - General physical health deterioration [Unknown]
  - Urosepsis [Fatal]
